FAERS Safety Report 20812546 (Version 2)
Quarter: 2022Q2

REPORT INFORMATION
  Report Type: Spontaneous
  Country: AM (occurrence: None)
  Receive Date: 20220511
  Receipt Date: 20220516
  Transmission Date: 20220721
  Serious: Yes (Other)
  Sender: FDA-Public Use
  Company Number: AM-ROCHE-3093699

PATIENT
  Age: 42 Year
  Sex: Male

DRUGS (8)
  1. MABTHERA [Suspect]
     Active Substance: RITUXIMAB
     Indication: Diffuse large B-cell lymphoma
     Dosage: GOT 3 CYCLES OF THIS REGIMEN, LAST ONE WAS ON 04/MAR/2022.
     Route: 042
     Dates: start: 20220107, end: 20220326
  2. MABTHERA [Suspect]
     Active Substance: RITUXIMAB
     Dosage: ONE CYCLE
     Route: 042
     Dates: start: 20220404
  3. MABTHERA [Suspect]
     Active Substance: RITUXIMAB
     Dosage: MABTHERA (800 MR)
     Route: 042
     Dates: start: 20220421
  4. CYCLOPHOSPHAMIDE\DOXORUBICIN\PREDNISONE\VINCRISTINE [Suspect]
     Active Substance: CYCLOPHOSPHAMIDE\DOXORUBICIN\PREDNISONE\VINCRISTINE
     Indication: Diffuse large B-cell lymphoma
     Dosage: GOT 3 CYCLES OF THIS REGIMEN, LAST ONE WAS ON 04/MAR/2022.
     Route: 065
     Dates: start: 20220107, end: 20220326
  5. DEXAMETHASONE [Suspect]
     Active Substance: DEXAMETHASONE
     Indication: Diffuse large B-cell lymphoma
     Dosage: FOR ONE CYCLE
     Route: 065
     Dates: start: 20220404
  6. CYTARABINE [Suspect]
     Active Substance: CYTARABINE
     Indication: Diffuse large B-cell lymphoma
     Dosage: FOR ONE CYCLE
     Route: 065
     Dates: start: 20220404
  7. BENDAMUSTINE [Suspect]
     Active Substance: BENDAMUSTINE
     Indication: Diffuse large B-cell lymphoma
     Route: 065
     Dates: start: 20220404
  8. METHOTREXATE [Suspect]
     Active Substance: METHOTREXATE
     Indication: Diffuse large B-cell lymphoma
     Route: 065
     Dates: start: 20220421

REACTIONS (1)
  - Neoplasm progression [Not Recovered/Not Resolved]
